FAERS Safety Report 4722091-0 (Version None)
Quarter: 2005Q3

REPORT INFORMATION
  Report Type: 
  Country: None (occurrence: None)
  Receive Date: 20050722
  Receipt Date: 20050718
  Transmission Date: 20060218
  Serious: Yes (Other)
  Sender: FDA-Public Use
  Company Number: 200516515GDDC

PATIENT
  Age: 58 Year
  Sex: Female

DRUGS (6)
  1. ALLEGRA [Suspect]
     Indication: MULTIPLE ALLERGIES
     Route: 048
  2. CODEINE [Concomitant]
     Indication: PAIN
     Route: 048
     Dates: start: 20050716
  3. ADVAIR DISKUS 100/50 [Concomitant]
     Indication: ASTHMA
     Route: 055
  4. ADVAIR DISKUS 100/50 [Concomitant]
     Indication: EMPHYSEMA
     Route: 055
  5. CELEBREX [Concomitant]
     Indication: RHEUMATOID ARTHRITIS
  6. ARTHROTEC [Concomitant]
     Indication: RHEUMATOID ARTHRITIS

REACTIONS (1)
  - LIVER FUNCTION TEST ABNORMAL [None]
